FAERS Safety Report 17223738 (Version 1)
Quarter: 2020Q1

REPORT INFORMATION
  Report Type: Spontaneous
  Country: JP (occurrence: JP)
  Receive Date: 20200102
  Receipt Date: 20200102
  Transmission Date: 20200409
  Serious: Yes (Hospitalization, Other)
  Sender: FDA-Public Use
  Company Number: JP-MICRO LABS LIMITED-ML2019-03935

PATIENT
  Age: 42 Year
  Sex: Female

DRUGS (3)
  1. TRANEXAMIC ACID. [Suspect]
     Active Substance: TRANEXAMIC ACID
     Indication: PHARYNGITIS BACTERIAL
  2. AMOXICILLIN. [Concomitant]
     Active Substance: AMOXICILLIN
     Indication: PHARYNGITIS BACTERIAL
  3. LOXOPROFEN [Concomitant]
     Active Substance: LOXOPROFEN
     Indication: PHARYNGITIS BACTERIAL

REACTIONS (1)
  - Fixed eruption [Recovered/Resolved]
